FAERS Safety Report 14547123 (Version 10)
Quarter: 2021Q3

REPORT INFORMATION
  Report Type: Spontaneous
  Country: US (occurrence: US)
  Receive Date: 20180219
  Receipt Date: 20210909
  Transmission Date: 20211014
  Serious: Yes (Other)
  Sender: FDA-Public Use
  Company Number: US-PFIZER INC-2018069360

PATIENT
  Age: 56 Year
  Sex: Male

DRUGS (3)
  1. LYRICA [Suspect]
     Active Substance: PREGABALIN
     Dosage: 150 MG, 1X/DAY (TAKE ONE 50 MG CAPSULE IN THE MORNING WITH A 100 MG CAPSULE)
     Route: 048
  2. LYRICA [Suspect]
     Active Substance: PREGABALIN
     Dosage: UNK (BREAK ONE IN HALF OR JUST NOT TAKE ONE THAT MORNING FOR THE NEXT FEW DAYS)AS NEEDED
  3. LYRICA [Suspect]
     Active Substance: PREGABALIN
     Dosage: 100 MG, 3X/DAY
     Route: 048

REACTIONS (7)
  - Malaise [Unknown]
  - Joint injury [Unknown]
  - Discomfort [Unknown]
  - Nervous system disorder [Unknown]
  - Musculoskeletal discomfort [Unknown]
  - Stress [Unknown]
  - Intentional product misuse [Unknown]
